FAERS Safety Report 7654574-8 (Version None)
Quarter: 2011Q3

REPORT INFORMATION
  Report Type: 
  Country: None (occurrence: None)
  Receive Date: 20110803
  Receipt Date: 20110725
  Transmission Date: 20111222
  Serious: Yes (Hospitalization)
  Sender: FDA-Public Use
  Company Number: US-ASTRAZENECA-2011SE44228

PATIENT
  Age: 54 Year
  Sex: Male

DRUGS (5)
  1. SIMVASTATIN [Concomitant]
  2. METOPROLOL TARTRATE [Concomitant]
  3. LORATADINE [Concomitant]
  4. NEXIUM [Suspect]
     Indication: GASTROOESOPHAGEAL REFLUX DISEASE
     Route: 048
  5. EAR DROPS [Concomitant]

REACTIONS (1)
  - MYOCARDIAL INFARCTION [None]
